FAERS Safety Report 19457580 (Version 1)
Quarter: 2021Q2

REPORT INFORMATION
  Report Type: Spontaneous
  Country: US (occurrence: US)
  Receive Date: 20210624
  Receipt Date: 20210624
  Transmission Date: 20210717
  Serious: No
  Sender: FDA-Public Use
  Company Number: US-JNJFOC-20210648267

PATIENT
  Age: 55 Year
  Sex: Male

DRUGS (1)
  1. MENS ROGAINE EXTRA STRENGTH [Suspect]
     Active Substance: MINOXIDIL
     Indication: PRODUCT USED FOR UNKNOWN INDICATION
     Dosage: TWICE A DAY AS INSTRUCTED, DATE OF LAST ADMINISTRATION 01?APR?2021
     Route: 061
     Dates: start: 20200110

REACTIONS (1)
  - Drug ineffective [Unknown]
